FAERS Safety Report 11531119 (Version 1)
Quarter: 2015Q3

REPORT INFORMATION
  Report Type: Spontaneous
  Country: US (occurrence: US)
  Receive Date: 20150903
  Receipt Date: 20150903
  Transmission Date: 20151125
  Serious: No
  Sender: FDA-Public Use
  Company Number: US-ELI_LILLY_AND_COMPANY-US201305003148

PATIENT
  Age: 56 Year
  Sex: Female

DRUGS (7)
  1. LISINOPRIL. [Concomitant]
     Active Substance: LISINOPRIL
  2. CYMBALTA [Suspect]
     Active Substance: DULOXETINE HYDROCHLORIDE
     Indication: FIBROMYALGIA
     Dosage: 30 MG, THREE TIMES A DAY
  3. LYRICA [Concomitant]
     Active Substance: PREGABALIN
  4. FLEXERIL [Concomitant]
     Active Substance: CYCLOBENZAPRINE HYDROCHLORIDE
  5. PERCOCET [Concomitant]
     Active Substance: ACETAMINOPHEN\OXYCODONE HYDROCHLORIDE
  6. GABAPENTIN. [Concomitant]
     Active Substance: GABAPENTIN
  7. XANAX [Concomitant]
     Active Substance: ALPRAZOLAM

REACTIONS (7)
  - Crying [Unknown]
  - Nausea [Unknown]
  - Intervertebral disc protrusion [Unknown]
  - Depression [Unknown]
  - Night sweats [Unknown]
  - Drug withdrawal syndrome [Unknown]
  - Off label use [Unknown]
